FAERS Safety Report 5960147-5 (Version None)
Quarter: 2008Q4

REPORT INFORMATION
  Report Type: 
  Country: None (occurrence: None)
  Receive Date: 20081120
  Receipt Date: 20081111
  Transmission Date: 20090506
  Serious: Yes (Death, Life-Threatening)
  Sender: FDA-Public Use
  Company Number: JP-ASTRAZENECA-2008SE03858

PATIENT
  Sex: Female
  Weight: 1 kg

DRUGS (2)
  1. BLOPRESS TABLETS 8 [Suspect]
     Indication: HYPERTENSION
     Route: 064
     Dates: start: 20030101, end: 20080730
  2. ASPIRIN [Concomitant]
     Indication: CEREBROVASCULAR ACCIDENT PROPHYLAXIS
     Route: 064
     Dates: start: 20030101, end: 20080730

REACTIONS (3)
  - PREMATURE BABY [None]
  - PULMONARY HYPOPLASIA [None]
  - RENAL DYSPLASIA [None]
